FAERS Safety Report 8890847 (Version 1)
Quarter: 2012Q4

REPORT INFORMATION
  Report Type: 
  Country: US (occurrence: US)
  Receive Date: 20121107
  Receipt Date: 20121107
  Transmission Date: 20130627
  Serious: No
  Sender: FDA-Public Use
  Company Number: US-ASTRAZENECA-2012SE81062

PATIENT
  Sex: Female

DRUGS (5)
  1. SEROQUEL [Suspect]
     Indication: SLEEP DISORDER
     Route: 048
  2. SEROQUEL [Suspect]
     Indication: SLEEP DISORDER
     Route: 048
  3. AMBIEN [Concomitant]
     Indication: SLEEP DISORDER
     Route: 048
  4. DALMANE [Concomitant]
     Indication: SLEEP DISORDER
     Route: 048
  5. RESTORIL [Concomitant]
     Indication: SLEEP DISORDER
     Route: 048

REACTIONS (4)
  - Hallucination [Unknown]
  - Terminal insomnia [Unknown]
  - Intentional drug misuse [Unknown]
  - Off label use [Unknown]
